FAERS Safety Report 5214437-4 (Version None)
Quarter: 2007Q1

REPORT INFORMATION
  Report Type: 
  Country: None (occurrence: None)
  Receive Date: 20070122
  Receipt Date: 20070108
  Transmission Date: 20070707
  Serious: Yes (Other)
  Sender: FDA-Public Use
  Company Number: US-PFIZER INC-2007003256

PATIENT
  Age: 17 Year
  Sex: Female

DRUGS (1)
  1. DEPO-PROVERA [Suspect]
     Route: 030

REACTIONS (11)
  - BLOOD TRIGLYCERIDES INCREASED [None]
  - FATIGUE [None]
  - GLUCOSE TOLERANCE IMPAIRED [None]
  - HORMONE LEVEL ABNORMAL [None]
  - KELOID SCAR [None]
  - LIVER FUNCTION TEST ABNORMAL [None]
  - MALAISE [None]
  - RENAL IMPAIRMENT [None]
  - SKIN STRIAE [None]
  - SWELLING [None]
  - WEIGHT INCREASED [None]
